FAERS Safety Report 9548145 (Version 1)
Quarter: 2013Q2

REPORT INFORMATION
  Report Type: Spontaneous
  Country: US (occurrence: None)
  Receive Date: 20130606
  Receipt Date: 20130606
  Transmission Date: 20140414
  Serious: Yes (Hospitalization, Other)
  Sender: FDA-Public Use
  Company Number: 2013PROUSA02658

PATIENT
  Age: 66 Year
  Sex: Male
  Weight: 97.4 kg

DRUGS (5)
  1. PROVENGE (SIPULEUCEL-T) SUSPENSION, 250 ML [Suspect]
     Indication: PROSTATE CANCER METASTATIC
     Dosage: 250 ML, SINGLE, INTRAVENOUS
     Route: 042
     Dates: start: 20130218, end: 20130218
  2. OS-CAL (CALCIUM CARBONATE) [Concomitant]
  3. DENOSUMAB (DENOSUMAB) (RANMARK)) [Concomitant]
  4. LUPRON (LEUPRORLIN ACETATE) [Concomitant]
  5. LOPRESSOR (METOPROLOL TARTRATE) [Concomitant]

REACTIONS (2)
  - Metastases to bone [None]
  - Metastases to central nervous system [None]
